FAERS Safety Report 8354779-7 (Version None)
Quarter: 2012Q2

REPORT INFORMATION
  Report Type: 
  Country: None (occurrence: None)
  Receive Date: 20120511
  Receipt Date: 20110909
  Transmission Date: 20120825
  Serious: Yes (Death)
  Sender: FDA-Public Use
  Company Number: GXKR2010GB09443

PATIENT
  Age: 60 Year
  Sex: Female

DRUGS (12)
  1. ALENDRONIC ACID [Concomitant]
  2. DRUG THERAPY NOS [Concomitant]
     Dosage: UNK
     Dates: start: 20090822, end: 20090929
  3. OXALIPLATIN [Suspect]
     Indication: COLORECTAL CANCER
     Dosage: UNK
     Route: 041
     Dates: start: 20091016, end: 20091016
  4. ASPIRIN [Concomitant]
  5. CAPECITABINE [Concomitant]
     Indication: COLORECTAL CANCER
     Dosage: UNK
     Route: 048
     Dates: start: 20091016
  6. AMOXICILLIN [Concomitant]
     Dosage: UNK
     Dates: start: 20090926, end: 20091001
  7. CAPECITABINE [Concomitant]
     Dosage: UNK
     Dates: start: 20090821
  8. SIMVASTATIN [Concomitant]
  9. ADCAL [Concomitant]
  10. OXALIPLATIN [Suspect]
     Dosage: UNK
     Route: 041
     Dates: start: 20090821, end: 20090821
  11. AMLODIPINE BESYLATE [Concomitant]
     Dosage: UNK
     Dates: end: 20091027
  12. DRUG THERAPY NOS [Concomitant]
     Indication: THROMBOSIS PROPHYLAXIS
     Dosage: UNK
     Dates: start: 20091016, end: 20091019

REACTIONS (4)
  - PERIPHERAL ISCHAEMIA [None]
  - UROSEPSIS [None]
  - DYSPNOEA [None]
  - FEMORAL ARTERY EMBOLISM [None]
